FAERS Safety Report 6313436-9 (Version None)
Quarter: 2009Q3

REPORT INFORMATION
  Report Type: 
  Country: None (occurrence: None)
  Receive Date: 20090818
  Receipt Date: 20090803
  Transmission Date: 20100115
  Serious: Yes (Other)
  Sender: FDA-Public Use
  Company Number: GB-NAPPMUNDI-GBR-2009-0005404

PATIENT
  Sex: Female

DRUGS (7)
  1. OXYCONTIN [Suspect]
     Indication: NEURALGIA
     Dosage: 80 MG, TID
     Route: 048
     Dates: start: 20090101
  2. OXYCONTIN [Suspect]
     Dosage: 640 MG, DAILY
     Route: 048
     Dates: start: 20060101
  3. DIAZEPAM [Concomitant]
     Indication: BACK PAIN
     Dosage: 10 MG, BID
     Route: 048
     Dates: end: 20090708
  4. DIAZEPAM [Concomitant]
     Dosage: 10 MG, TID
     Route: 048
  5. DICLOFENAC [Concomitant]
     Indication: PAIN
     Dosage: 150 MG, DAILY
     Route: 048
     Dates: end: 20090720
  6. PARACETAMOL [Concomitant]
     Indication: PAIN
     Dosage: 4 GRAM, DAILY
     Route: 048
  7. LACTULOSE [Concomitant]
     Indication: CONSTIPATION
     Dosage: 30 ML, DAILY
     Route: 048

REACTIONS (3)
  - COGNITIVE DISORDER [None]
  - DRUG EXPOSURE DURING PREGNANCY [None]
  - INTENTIONAL DRUG MISUSE [None]
